FAERS Safety Report 11501508 (Version 6)
Quarter: 2016Q1

REPORT INFORMATION
  Report Type: Spontaneous
  Country: JP (occurrence: JP)
  Receive Date: 20150914
  Receipt Date: 20160331
  Transmission Date: 20160525
  Serious: Yes (Death, Life-Threatening, Other)
  Sender: FDA-Public Use
  Company Number: JP-ACTELION-A-CH2015-123774

PATIENT
  Age: 65 Year
  Sex: Female

DRUGS (21)
  1. OXYGEN. [Concomitant]
     Active Substance: OXYGEN
  2. ALFACALCIDOL [Concomitant]
     Active Substance: ALFACALCIDOL
  3. OPSUMIT [Suspect]
     Active Substance: MACITENTAN
     Dosage: 10 MG, QD
     Route: 048
     Dates: start: 20150619, end: 20150721
  4. CALCIUM CARBONATE. [Concomitant]
     Active Substance: CALCIUM CARBONATE
  5. OPSUMIT [Suspect]
     Active Substance: MACITENTAN
     Indication: PULMONARY ARTERIAL HYPERTENSION
     Dosage: 10 MG, QD
     Route: 048
     Dates: start: 20150728, end: 20150930
  6. BENIDIPINE HYDROCHLORIDE [Concomitant]
     Active Substance: BENIDIPINE HYDROCHLORIDE
  7. AZOSEMIDE [Concomitant]
     Active Substance: AZOSEMIDE
  8. PREDNISOLONE. [Suspect]
     Active Substance: PREDNISOLONE
     Indication: SYSTEMIC LUPUS ERYTHEMATOSUS
     Dosage: 12.5 MG, QD
     Route: 048
     Dates: start: 20150410
  9. CLARITHROMYCIN. [Concomitant]
     Active Substance: CLARITHROMYCIN
  10. URSODEOXYCHOLIC ACID [Concomitant]
     Active Substance: URSODIOL
  11. CHOLECALCIFEROL [Concomitant]
     Active Substance: CHOLECALCIFEROL
  12. LOXOPROFEN SODIUM [Concomitant]
     Active Substance: LOXOPROFEN SODIUM
  13. ALENDRONATE SODIUM. [Concomitant]
     Active Substance: ALENDRONATE SODIUM
  14. MAGNESIUM [Concomitant]
     Active Substance: MAGNESIUM
  15. CICLOSPORIN [Suspect]
     Active Substance: CYCLOSPORINE
     Indication: SYSTEMIC LUPUS ERYTHEMATOSUS
     Dosage: 37.5 MG, BID
     Route: 048
     Dates: start: 20150603
  16. LINAGLIPTIN [Concomitant]
     Active Substance: LINAGLIPTIN
  17. INSULIN HUMAN [Concomitant]
     Active Substance: INSULIN HUMAN
  18. BROTIZOLAM [Concomitant]
     Active Substance: BROTIZOLAM
  19. SODIUM RABEPRAZOLE [Concomitant]
     Active Substance: RABEPRAZOLE SODIUM
  20. CARBOCISTEINE [Concomitant]
     Active Substance: CARBOCYSTEINE
  21. POTASSIUM L ASPARTATE K [Concomitant]

REACTIONS (26)
  - Disseminated intravascular coagulation [Fatal]
  - Biopsy liver [Unknown]
  - Haemoglobin decreased [Recovering/Resolving]
  - Red blood cell count decreased [Recovering/Resolving]
  - Rash papular [Recovering/Resolving]
  - Dry skin [Recovering/Resolving]
  - Blood pressure decreased [Fatal]
  - Oesophageal varices haemorrhage [Recovering/Resolving]
  - Hypochromic anaemia [Recovering/Resolving]
  - Purpura [Recovering/Resolving]
  - Cardio-respiratory arrest [Fatal]
  - Haematocrit decreased [Recovering/Resolving]
  - Liver injury [Fatal]
  - Platelet count decreased [Recovering/Resolving]
  - Pruritus [Recovering/Resolving]
  - Pupillary light reflex tests abnormal [Fatal]
  - Oesophageal candidiasis [Recovered/Resolved]
  - Malaise [Fatal]
  - Shock [Fatal]
  - Depressed level of consciousness [Fatal]
  - Haemostasis [Unknown]
  - Transfusion [Unknown]
  - Spinal compression fracture [Not Recovered/Not Resolved]
  - Intra-abdominal haemorrhage [Fatal]
  - Hepatic haemorrhage [Fatal]
  - Back pain [Not Recovered/Not Resolved]

NARRATIVE: CASE EVENT DATE: 20150629
